FAERS Safety Report 16099902 (Version 1)
Quarter: 2019Q2

REPORT INFORMATION
  Report Type: Spontaneous
  Country: US (occurrence: US)
  Receive Date: 20190320
  Receipt Date: 20190320
  Transmission Date: 20190711
  Serious: No
  Sender: FDA-Public Use
  Company Number: None

PATIENT
  Age: 16 Year
  Sex: Male
  Weight: 59.85 kg

DRUGS (1)
  1. HALDOL [Suspect]
     Active Substance: HALOPERIDOL
     Dosage: ?          OTHER FREQUENCY:X1;?
     Route: 030
     Dates: start: 20181228, end: 20190107

REACTIONS (1)
  - Muscle spasms [None]

NARRATIVE: CASE EVENT DATE: 20181230
